FAERS Safety Report 23327217 (Version 1)
Quarter: 2023Q4

REPORT INFORMATION
  Report Type: Spontaneous
  Country: CN (occurrence: CN)
  Receive Date: 20231221
  Receipt Date: 20231221
  Transmission Date: 20240110
  Serious: Yes (Other)
  Sender: FDA-Public Use
  Company Number: None

PATIENT
  Age: 3 Year
  Sex: Male
  Weight: 19.2 kg

DRUGS (8)
  1. CYCLOPHOSPHAMIDE [Suspect]
     Active Substance: CYCLOPHOSPHAMIDE
     Indication: Neoplasm malignant
     Dosage: 0.76 G, ST, ONE TIME IN ONE DAY, DILUTED WITH (4:1), 250 ML OF GLUCOSE SODIUM CHLORIDE, AS A PART OF
     Route: 041
     Dates: start: 20230929, end: 20230929
  2. CYCLOPHOSPHAMIDE [Suspect]
     Active Substance: CYCLOPHOSPHAMIDE
     Indication: Chemotherapy
  3. DEXTROSE\SODIUM CHLORIDE [Suspect]
     Active Substance: DEXTROSE\SODIUM CHLORIDE
     Indication: Medication dilution
     Dosage: (4:1), 250 ML, ONE TIME IN ONE DAY, USED TO DILUTE 0.76 G OF CYCLOPHOSPHAMIDE
     Route: 041
     Dates: start: 20230929, end: 20230929
  4. SODIUM CHLORIDE [Suspect]
     Active Substance: SODIUM CHLORIDE
     Indication: Medication dilution
     Dosage: 0.9%, INJECTION, 10 ML, BID, USED TO DILUTE 0.028G OF CYTARABINE
     Route: 058
     Dates: start: 20230929, end: 20231002
  5. MERCAPTOPURINE [Suspect]
     Active Substance: MERCAPTOPURINE
     Indication: Neoplasm malignant
     Dosage: 38 MG, QN
     Route: 048
     Dates: start: 20230929, end: 20230929
  6. MERCAPTOPURINE [Suspect]
     Active Substance: MERCAPTOPURINE
     Indication: Chemotherapy
  7. CYTARABINE [Suspect]
     Active Substance: CYTARABINE
     Indication: Neoplasm malignant
     Dosage: 0.028 G, BID, DILUTED WITH 10 ML OF SODIUM CHLORIDE, AS A PART OF CAM CHEMOTHERAPY
     Route: 058
     Dates: start: 20230929, end: 20231002
  8. CYTARABINE [Suspect]
     Active Substance: CYTARABINE
     Indication: Chemotherapy

REACTIONS (1)
  - Myelosuppression [Recovering/Resolving]

NARRATIVE: CASE EVENT DATE: 20231006
